FAERS Safety Report 4366826-8 (Version None)
Quarter: 2004Q2

REPORT INFORMATION
  Report Type: 
  Country: None (occurrence: None)
  Receive Date: 20040520
  Receipt Date: 20040511
  Transmission Date: 20050107
  Serious: Yes (Other)
  Sender: FDA-Public Use
  Company Number: 2003182807US

PATIENT
  Age: 29 Year
  Sex: Female

DRUGS (8)
  1. SOLU-MEDROL [Suspect]
     Dosage: IV
     Route: 042
  2. BETASERON [Suspect]
  3. INTERFERON ALFA (INTERFERON ALFA) [Suspect]
  4. GLATIRAMER ACETATE (GLATIRAMER ACETATE) [Suspect]
  5. CGY (CGY) [Suspect]
  6. CYCLOPHOSPHAMIDE [Suspect]
  7. EQUINE ANTITHYMOCYTE GLOBULIN (EQUINE ANTITHYMOCYTE GLOBULIN) [Suspect]
  8. AUTOLOGOUS PERIPHERAL BLOOD STEM CELLS (AUTOLOGOUS PERIPHERAL BLOOD ST [Suspect]

REACTIONS (1)
  - HYPOTHYROIDISM [None]
